FAERS Safety Report 16385492 (Version 4)
Quarter: 2019Q4

REPORT INFORMATION
  Report Type: Spontaneous
  Country: US (occurrence: US)
  Receive Date: 20190603
  Receipt Date: 20191024
  Transmission Date: 20200122
  Serious: Yes (Other)
  Sender: FDA-Public Use
  Company Number: US-PFIZER INC-2019233099

PATIENT
  Age: 57 Year
  Sex: Female

DRUGS (1)
  1. IBRANCE [Suspect]
     Active Substance: PALBOCICLIB
     Indication: BREAST CANCER METASTATIC
     Dosage: UNK
     Dates: start: 20190529

REACTIONS (6)
  - Dyspnoea [Unknown]
  - Drug dependence [Unknown]
  - Fall [Unknown]
  - Alopecia [Unknown]
  - Hypokinesia [Unknown]
  - Hair texture abnormal [Unknown]
